FAERS Safety Report 18586135 (Version 5)
Quarter: 2021Q1

REPORT INFORMATION
  Report Type: Spontaneous
  Country: US (occurrence: US)
  Receive Date: 20201207
  Receipt Date: 20210318
  Transmission Date: 20210419
  Serious: Yes (Other)
  Sender: FDA-Public Use
  Company Number: US-PFIZER INC-2020481157

PATIENT
  Age: 73 Year
  Sex: Female
  Weight: 56.69 kg

DRUGS (3)
  1. SKELAXIN [Suspect]
     Active Substance: METAXALONE
     Indication: MUSCLE SPASMS
     Dosage: 800 MG, AS NEEDED
     Route: 048
  2. SKELAXIN [Suspect]
     Active Substance: METAXALONE
     Dosage: 800 MG (QUANTITY FOR 90 DAYS: 270.)
  3. SKELAXIN [Suspect]
     Active Substance: METAXALONE
     Dosage: 800 MG [UP TO 2/ DAY]

REACTIONS (6)
  - Arthritis [Unknown]
  - COVID-19 [Unknown]
  - Eye disorder [Unknown]
  - Neuropathy peripheral [Unknown]
  - Osteoarthritis [Unknown]
  - Poor quality sleep [Unknown]
